FAERS Safety Report 5480242-7 (Version None)
Quarter: 2007Q4

REPORT INFORMATION
  Report Type: 
  Country: None (occurrence: None)
  Receive Date: 20071003
  Receipt Date: 20070917
  Transmission Date: 20080405
  Serious: Yes (Hospitalization)
  Sender: FDA-Public Use
  Company Number: B0488889A

PATIENT
  Sex: Female

DRUGS (4)
  1. LITHIUM SALT (FORMULATION UNKNOWN) (LITHIUM SALT) [Suspect]
  2. ACYCLOVIR [Suspect]
     Dosage: 10 MG/KG/  1500 MG; INTRAVENOUS
     Route: 042
  3. IMIPRAMINE [Concomitant]
  4. TRIGLYCERIDES [Concomitant]

REACTIONS (16)
  - BACTERIURIA [None]
  - COMA [None]
  - DIARRHOEA [None]
  - DRUG INTERACTION [None]
  - DRUG LEVEL ABOVE THERAPEUTIC [None]
  - ENCEPHALITIS [None]
  - ENCEPHALITIS HERPES [None]
  - HAEMODIALYSIS [None]
  - NECK PAIN [None]
  - NEPHROGENIC DIABETES INSIPIDUS [None]
  - PAIN IN EXTREMITY [None]
  - PYURIA [None]
  - RESPIRATORY FAILURE [None]
  - RESPIRATORY TRACT INFECTION [None]
  - THERAPEUTIC AGENT TOXICITY [None]
  - VOMITING [None]
